FAERS Safety Report 7239419-2 (Version None)
Quarter: 2011Q1

REPORT INFORMATION
  Report Type: 
  Country: None (occurrence: None)
  Receive Date: 20110121
  Receipt Date: 20101213
  Transmission Date: 20110831
  Serious: Yes (Hospitalization)
  Sender: FDA-Public Use
  Company Number: PHHY2010IN90467

PATIENT
  Sex: Male

DRUGS (1)
  1. ACLASTA [Suspect]
     Indication: OSTEOPOROSIS
     Dosage: 5 MG/100ML
     Dates: start: 20100811

REACTIONS (5)
  - TENDERNESS [None]
  - ACCIDENT [None]
  - FEMUR FRACTURE [None]
  - HYPOKINESIA [None]
  - ARTHRALGIA [None]
